FAERS Safety Report 6177625-9 (Version None)
Quarter: 2009Q2

REPORT INFORMATION
  Report Type: 
  Country: None (occurrence: None)
  Receive Date: 20090501
  Receipt Date: 20090501
  Transmission Date: 20091009
  Serious: Yes (Life-Threatening, Hospitalization)
  Sender: FDA-Public Use
  Company Number: None

PATIENT
  Age: 62 Year
  Sex: Female
  Weight: 60 kg

DRUGS (12)
  1. NOREPINEPHRINE BITARTRATE [Suspect]
     Indication: HYPOTENSION
     Dosage: 5+ 015MCG/MIN
     Route: 042
     Dates: start: 20090311
  2. CASPOFUNGIN [Concomitant]
  3. CODEINE/GUAIFENESIN [Concomitant]
  4. FENTANYL [Concomitant]
  5. HYDROCORTISONE [Concomitant]
  6. INSULIN [Concomitant]
  7. LORAZEPAM [Concomitant]
  8. MEROPENEM [Concomitant]
  9. PHENYLEPHRINE [Concomitant]
  10. ACETAMINOPHEN [Concomitant]
  11. VASOPRESSIN [Concomitant]
  12. LANSOPRAZOLE [Concomitant]

REACTIONS (1)
  - SUPRAVENTRICULAR TACHYCARDIA [None]
